FAERS Safety Report 8117000-0 (Version None)
Quarter: 2012Q1

REPORT INFORMATION
  Report Type: 
  Country: None (occurrence: None)
  Receive Date: 20120206
  Receipt Date: 20120131
  Transmission Date: 20120608
  Serious: Yes (Other)
  Sender: FDA-Public Use
  Company Number: PHHY2010FR092890

PATIENT
  Sex: Female
  Weight: 43 kg

DRUGS (8)
  1. CYCLOPHOSPHAMIDE [Concomitant]
     Indication: METASTASES TO BONE
     Dosage: 500 MG/M2, UNK
     Route: 042
  2. ZOMETA [Suspect]
     Indication: METASTASES TO BONE
     Route: 042
     Dates: start: 20051101
  3. CYCLOPHOSPHAMIDE [Concomitant]
     Indication: METASTASES TO BONE
     Dosage: 500 MG/M2, UNK
     Route: 042
  4. FEMARA [Concomitant]
     Indication: METASTASES TO BONE
     Dosage: 2.5 MG, DAILY
     Route: 048
     Dates: start: 20061001, end: 20071101
  5. ZOMETA [Suspect]
     Dosage: 4 MG EVERY 28 DAYS
     Route: 042
     Dates: start: 20060607, end: 20070901
  6. FLUOROURACIL [Concomitant]
     Indication: METASTASES TO BONE
     Dosage: 500 MG/M2, UNK
     Dates: start: 20060501, end: 20061001
  7. ZOMETA [Suspect]
     Dosage: 4 MG EVERY 4 WEEKS
     Route: 042
     Dates: start: 20090907
  8. EPIRUBICIN [Concomitant]
     Indication: METASTASES TO BONE
     Dosage: 50 MG/M2, UNK
     Route: 042

REACTIONS (3)
  - PAIN IN JAW [None]
  - OSTEONECROSIS OF JAW [None]
  - BONE LESION [None]
